FAERS Safety Report 15434257 (Version 1)
Quarter: 2018Q3

REPORT INFORMATION
  Report Type: Spontaneous
  Country: US (occurrence: US)
  Receive Date: 20180921
  Receipt Date: 20180921
  Transmission Date: 20181010
  Serious: No
  Sender: FDA-Public Use
  Company Number: None

PATIENT
  Age: 57 Year
  Sex: Male

DRUGS (3)
  1. DOCETAXEL INJ 20MG/ML [Suspect]
     Active Substance: DOCETAXEL
     Indication: PROSTATE CANCER
     Dates: start: 201803, end: 20180920
  2. XGEVA [Concomitant]
     Active Substance: DENOSUMAB
  3. DOCETAXEL INJ 20MG/ML [Suspect]
     Active Substance: DOCETAXEL
     Indication: BONE CANCER

REACTIONS (1)
  - Disease progression [None]

NARRATIVE: CASE EVENT DATE: 20180920
